FAERS Safety Report 16316850 (Version 3)
Quarter: 2019Q4

REPORT INFORMATION
  Report Type: Spontaneous
  Country: CN (occurrence: CN)
  Receive Date: 20190515
  Receipt Date: 20191119
  Transmission Date: 20200122
  Serious: Yes (Hospitalization)
  Sender: FDA-Public Use
  Company Number: CN-ASTRAZENECA-2019SE71592

PATIENT
  Age: 25932 Day
  Sex: Female

DRUGS (3)
  1. NEXIUM [Suspect]
     Active Substance: ESOMEPRAZOLE MAGNESIUM
     Indication: HYPERTENSION
     Route: 048
     Dates: start: 20190410
  2. BIAXIN [Suspect]
     Active Substance: CLARITHROMYCIN
     Indication: HYPERTENSION
     Route: 048
     Dates: start: 20190410
  3. AMOXICILLIN. [Suspect]
     Active Substance: AMOXICILLIN
     Indication: HYPERTENSION
     Route: 048
     Dates: start: 20190410

REACTIONS (1)
  - Drug eruption [Recovering/Resolving]

NARRATIVE: CASE EVENT DATE: 20190410
